FAERS Safety Report 6159479-X (Version None)
Quarter: 2009Q2

REPORT INFORMATION
  Report Type: 
  Country: None (occurrence: None)
  Receive Date: 20090420
  Receipt Date: 20071121
  Transmission Date: 20091009
  Serious: Yes (Death, Hospitalization, Other)
  Sender: FDA-Public Use
  Company Number: US-ASTRAZENECA-2006UW26070

PATIENT
  Age: 22964 Day
  Sex: Male
  Weight: 99.8 kg

DRUGS (31)
  1. SEROQUEL [Suspect]
     Indication: DEMENTIA ALZHEIMER'S TYPE
     Dosage: 200 MG - 300 MG
     Route: 048
     Dates: end: 20060616
  2. SEROQUEL [Suspect]
     Dosage: 25 MG - 200 MG
     Route: 048
  3. SEROQUEL [Suspect]
     Route: 048
  4. SEROQUEL [Suspect]
     Dosage: 25 MG - 300 MG
     Route: 048
     Dates: start: 20020514
  5. GEODON [Concomitant]
     Dosage: 10 MG - 60 MG
     Dates: start: 20050131, end: 20050805
  6. RISPERDAL [Concomitant]
  7. DEPAKOTE [Concomitant]
  8. NAMENDA [Concomitant]
  9. HYTRIN [Concomitant]
  10. AMARYL [Concomitant]
  11. ARICEPT [Concomitant]
  12. FUROSEMIDE [Concomitant]
  13. COZAAR [Concomitant]
  14. PREMARIN [Concomitant]
  15. LORAZEPAM [Concomitant]
  16. NORVASC [Concomitant]
  17. TYLENOL [Concomitant]
  18. WELLBUTRIN [Concomitant]
  19. VALPROIC ACID [Concomitant]
  20. HYDROCHLOROTHIAZIDE [Concomitant]
  21. VALIUM [Concomitant]
  22. FERROUS SULFATE TAB [Concomitant]
  23. VYTORIN [Concomitant]
  24. DILANTIN [Concomitant]
  25. HYDROXYZINE [Concomitant]
  26. GLYBURIDE [Concomitant]
  27. HALDOL [Concomitant]
  28. NOVOLOG [Concomitant]
  29. LEVOTHYROXINE SODIUM [Concomitant]
  30. FLAGYL [Concomitant]
  31. FLU VACCINE [Concomitant]

REACTIONS (23)
  - ANXIETY [None]
  - BALANITIS [None]
  - CELLULITIS [None]
  - CONVULSION [None]
  - DEHYDRATION [None]
  - DEMENTIA ALZHEIMER'S TYPE [None]
  - DEPRESSION [None]
  - DIABETES MELLITUS [None]
  - GOUT [None]
  - GRAVITATIONAL OEDEMA [None]
  - HYPERLIPIDAEMIA [None]
  - HYPERNATRAEMIA [None]
  - HYPERTENSION [None]
  - HYPERURICAEMIA [None]
  - HYPONATRAEMIA [None]
  - OEDEMA PERIPHERAL [None]
  - PEPTIC ULCER PERFORATION, OBSTRUCTIVE [None]
  - PNEUMONIA [None]
  - RENAL FAILURE [None]
  - SENILE DEMENTIA [None]
  - SKIN INJURY [None]
  - TRANSIENT ISCHAEMIC ATTACK [None]
  - URINARY INCONTINENCE [None]
